FAERS Safety Report 10560251 (Version 3)
Quarter: 2014Q4

REPORT INFORMATION
  Report Type: Spontaneous
  Country: US (occurrence: US)
  Receive Date: 20141103
  Receipt Date: 20141205
  Transmission Date: 20150529
  Serious: No
  Sender: FDA-Public Use
  Company Number: US-BRISTOL-MYERS SQUIBB COMPANY-21067855

PATIENT
  Age: 58 Year
  Sex: Female
  Weight: 105.67 kg

DRUGS (8)
  1. GLYBURIDE. [Concomitant]
     Active Substance: GLYBURIDE
  2. INVOKANA [Concomitant]
     Active Substance: CANAGLIFLOZIN
  3. GLUCOPHAGE XR [Suspect]
     Active Substance: METFORMIN HYDROCHLORIDE
     Indication: TYPE 2 DIABETES MELLITUS
     Route: 048
  4. PRINIVIL [Concomitant]
     Active Substance: LISINOPRIL
  5. CARDIZEM CD [Concomitant]
     Active Substance: DILTIAZEM HYDROCHLORIDE
  6. TOPROL XL [Concomitant]
     Active Substance: METOPROLOL SUCCINATE
  7. NOVOLOG [Concomitant]
     Active Substance: INSULIN ASPART
     Dosage: 70/30
  8. TRICOR [Concomitant]
     Active Substance: FENOFIBRATE

REACTIONS (2)
  - Blood glucose increased [Unknown]
  - Product quality issue [Unknown]
